FAERS Safety Report 9555756 (Version 1)
Quarter: 2013Q3

REPORT INFORMATION
  Report Type: Spontaneous
  Country: US (occurrence: None)
  Receive Date: 20130726
  Receipt Date: 20130726
  Transmission Date: 20140515
  Serious: Yes (Hospitalization)
  Sender: FDA-Public Use
  Company Number: UTC-023907

PATIENT
  Age: 56 Year
  Sex: Female
  Weight: 85.45 kg

DRUGS (3)
  1. REMODULIN [Suspect]
     Indication: PULMONARY ARTERIAL HYPERTENSION
     Dosage: 2.88 UG/KG (0.002 UG/KG, 1 IN 1 MIN), INTRAVENOUS DRIP
     Route: 041
     Dates: start: 20120905, end: 201209
  2. REVATIO (SILDENAFIL CITRATE) (UNKNOWN) (SILDENAFIL) [Concomitant]
  3. PLAVIX (CLOPIDOGREL) [Concomitant]

REACTIONS (1)
  - Dizziness [None]
